FAERS Safety Report 8172945-0 (Version None)
Quarter: 2012Q1

REPORT INFORMATION
  Report Type: 
  Country: None (occurrence: None)
  Receive Date: 20120223
  Receipt Date: 20120216
  Transmission Date: 20120608
  Serious: Yes (Other)
  Sender: FDA-Public Use
  Company Number: ADR-2012-00119

PATIENT
  Sex: Male

DRUGS (2)
  1. LIORESAL [Suspect]
     Indication: MULTIPLE SCLEROSIS
     Route: 037
  2. LIORESAL [Suspect]
     Indication: MUSCLE SPASTICITY
     Route: 037

REACTIONS (6)
  - WOUND INFECTION STAPHYLOCOCCAL [None]
  - DEVICE RELATED INFECTION [None]
  - IMPLANT SITE DISCHARGE [None]
  - IMPLANT SITE SWELLING [None]
  - IMPLANT SITE PAIN [None]
  - IMPLANT SITE ERYTHEMA [None]
